APPROVED DRUG PRODUCT: HYLOREL
Active Ingredient: GUANADREL SULFATE
Strength: 10MG
Dosage Form/Route: TABLET;ORAL
Application: N018104 | Product #001
Applicant: PHARMACIA AND UPJOHN CO
Approved: Dec 29, 1982 | RLD: No | RS: No | Type: DISCN